FAERS Safety Report 7535822-1 (Version None)
Quarter: 2011Q2

REPORT INFORMATION
  Report Type: 
  Country: None (occurrence: None)
  Receive Date: 20110609
  Receipt Date: 20110602
  Transmission Date: 20111010
  Serious: Yes (Death, Other)
  Sender: FDA-Public Use
  Company Number: US-TYCO HEALTHCARE/MALLINCKRODT-T201101128

PATIENT
  Age: 83 Year
  Sex: Male

DRUGS (1)
  1. OPTIRAY 300 [Suspect]
     Indication: COMPUTERISED TOMOGRAM
     Dosage: MEAN DOSE 111 +/- 24 ML

REACTIONS (4)
  - PNEUMONIA [None]
  - SEPSIS [None]
  - RESPIRATORY FAILURE [None]
  - NEPHROPATHY TOXIC [None]
